FAERS Safety Report 9229114 (Version 1)
Quarter: 2013Q2

REPORT INFORMATION
  Report Type: Spontaneous
  Country: NZ (occurrence: NZ)
  Receive Date: 20130412
  Receipt Date: 20130412
  Transmission Date: 20140414
  Serious: Yes (Other)
  Sender: FDA-Public Use
  Company Number: NZ-ASTRAZENECA-2013SE20602

PATIENT
  Age: 23142 Day
  Sex: Female

DRUGS (3)
  1. BRILINTA [Suspect]
     Route: 048
     Dates: start: 20130313
  2. METOPROLOL CR [Concomitant]
     Route: 048
  3. ACE INHIBITOR [Concomitant]

REACTIONS (1)
  - Exfoliative rash [Unknown]
